FAERS Safety Report 16694454 (Version 1)
Quarter: 2019Q3

REPORT INFORMATION
  Report Type: Spontaneous
  Country: DE (occurrence: DE)
  Receive Date: 20190812
  Receipt Date: 20190812
  Transmission Date: 20191004
  Serious: Yes (Other)
  Sender: FDA-Public Use
  Company Number: DE-OTSUKA-2019_029018

PATIENT

DRUGS (2)
  1. SERTRALIN [Concomitant]
     Active Substance: SERTRALINE HYDROCHLORIDE
     Indication: PRODUCT USED FOR UNKNOWN INDICATION
     Dosage: UNK
     Route: 065
  2. ABILIFY [Suspect]
     Active Substance: ARIPIPRAZOLE
     Indication: SCHIZOAFFECTIVE DISORDER
     Dosage: UNDER 15 MG DAILY
     Route: 065

REACTIONS (5)
  - Cardiac disorder [Unknown]
  - Hypertensive crisis [Unknown]
  - Cardiovascular disorder [Unknown]
  - Product use in unapproved indication [Unknown]
  - Cardiac failure [Unknown]
